FAERS Safety Report 9346559 (Version 1)
Quarter: 2013Q2

REPORT INFORMATION
  Report Type: Spontaneous
  Country: US (occurrence: US)
  Receive Date: 20130613
  Receipt Date: 20130613
  Transmission Date: 20140414
  Serious: Yes (Hospitalization)
  Sender: FDA-Public Use
  Company Number: US-BAYER-2013-071811

PATIENT
  Age: 45 Year
  Sex: Female
  Weight: 83.9 kg

DRUGS (4)
  1. YASMIN [Suspect]
  2. LEVOTHYROXINE [Concomitant]
  3. PROZAC [Concomitant]
  4. FERROUS GLUCONATE [Concomitant]

REACTIONS (1)
  - Deep vein thrombosis [None]
